FAERS Safety Report 9955330 (Version 3)
Quarter: 2014Q1

REPORT INFORMATION
  Report Type: Report from Study
  Country: CA (occurrence: CA)
  Receive Date: 20140304
  Receipt Date: 20140313
  Transmission Date: 20141002
  Serious: Yes (Life-Threatening, Hospitalization, Other)
  Sender: FDA-Public Use
  Company Number: CA-ABBVIE-14P-028-1195924-00

PATIENT
  Age: 28 Year
  Sex: Female
  Weight: 61.9 kg

DRUGS (4)
  1. HUMIRA [Suspect]
     Indication: CROHN^S DISEASE
     Dates: start: 20090724, end: 20140121
  2. QUETIAPINE [Concomitant]
     Indication: INSOMNIA
     Dosage: AT BEDTIME
     Route: 048
  3. AZATHIOPRINE [Concomitant]
     Indication: CROHN^S DISEASE
     Route: 048
  4. IMURAN [Concomitant]
     Indication: CROHN^S DISEASE

REACTIONS (7)
  - Respiratory distress [Recovered/Resolved]
  - Acidosis [Unknown]
  - Urosepsis [Recovered/Resolved]
  - Sepsis [Not Recovered/Not Resolved]
  - Calculus ureteric [Not Recovered/Not Resolved]
  - Influenza [Unknown]
  - Hypotension [Unknown]
